FAERS Safety Report 4321138-3 (Version None)
Quarter: 2004Q1

REPORT INFORMATION
  Report Type: 
  Country: None (occurrence: None)
  Receive Date: 20040315
  Receipt Date: 20031203
  Transmission Date: 20041129
  Serious: Yes (Hospitalization)
  Sender: FDA-Public Use
  Company Number: PHEH2003US11073

PATIENT
  Age: 54 Year
  Sex: Male

DRUGS (1)
  1. TRILEPTAL [Suspect]
     Indication: BIPOLAR DISORDER
     Dosage: 1500-2100 MG/DAY, ORAL
     Route: 048

REACTIONS (2)
  - HYPONATRAEMIA [None]
  - RASH [None]
